FAERS Safety Report 10372546 (Version 2)
Quarter: 2014Q3

REPORT INFORMATION
  Report Type: Spontaneous
  Country: US (occurrence: US)
  Receive Date: 20140808
  Receipt Date: 20140808
  Transmission Date: 20150326
  Serious: No
  Sender: FDA-Public Use
  Company Number: US-BRISTOL-MYERS SQUIBB COMPANY-19169499

PATIENT
  Age: 42 Year
  Sex: Male
  Weight: 65.76 kg

DRUGS (1)
  1. SPRYCEL (CML) TABS 50 MG [Suspect]
     Active Substance: DASATINIB
     Indication: CHRONIC MYELOID LEUKAEMIA
     Dosage: 1 DF=1TAB.STOPPED ON 08JUL13,RESTARTED:01AUG13 AT 50MG,DOSE REDUCED FRM 100MG TO 70MG TO 50MG
     Route: 048
     Dates: start: 20130415

REACTIONS (1)
  - Full blood count decreased [Unknown]

NARRATIVE: CASE EVENT DATE: 20130708
